FAERS Safety Report 16260370 (Version 1)
Quarter: 2019Q2

REPORT INFORMATION
  Report Type: Report from Study
  Country: US (occurrence: US)
  Receive Date: 20190501
  Receipt Date: 20190501
  Transmission Date: 20190711
  Serious: Yes (Death)
  Sender: FDA-Public Use
  Company Number: US-TAIHO ONCOLOGY  INC-EU-2019-01351

PATIENT
  Sex: Female
  Weight: 52 kg

DRUGS (3)
  1. VITAMIN D NOS [Concomitant]
     Active Substance: VITAMIN D NOS
     Dosage: NI
  2. LONSURF [Suspect]
     Active Substance: TIPIRACIL HYDROCHLORIDE\TRIFLURIDINE
     Indication: COLON CANCER
     Dosage: CYCLE UNKNOWN?15MG X 3
     Route: 048
     Dates: start: 20190225
  3. VITAMIN C [Concomitant]
     Active Substance: ASCORBIC ACID
     Dosage: NI

REACTIONS (1)
  - Death [Fatal]
